FAERS Safety Report 7439529-0 (Version None)
Quarter: 2011Q2

REPORT INFORMATION
  Report Type: 
  Country: None (occurrence: None)
  Receive Date: 20110427
  Receipt Date: 20110422
  Transmission Date: 20111010
  Serious: Yes (Hospitalization)
  Sender: FDA-Public Use
  Company Number: US-BRISTOL-MYERS SQUIBB COMPANY-15693955

PATIENT
  Age: 55 Year
  Sex: Female
  Weight: 129 kg

DRUGS (3)
  1. CARBOPLATIN [Suspect]
     Indication: NON-SMALL CELL LUNG CANCER
     Dosage: LAST DOSE:12APR2011
     Dates: start: 20110201, end: 20110412
  2. ERBITUX [Suspect]
     Indication: NON-SMALL CELL LUNG CANCER
     Dosage: LAST DOSE:29MAR2011
     Dates: start: 20110201, end: 20110329
  3. TAXOL [Suspect]
     Indication: NON-SMALL CELL LUNG CANCER
     Dosage: LAST DOSE:19APR2011
     Dates: start: 20110201, end: 20110419

REACTIONS (3)
  - SINUS TACHYCARDIA [None]
  - DECREASED APPETITE [None]
  - DEHYDRATION [None]
